FAERS Safety Report 8713561 (Version 2)
Quarter: 2012Q4

REPORT INFORMATION
  Report Type: 
  Country: US (occurrence: US)
  Receive Date: 20120808
  Receipt Date: 20121226
  Transmission Date: 20130627
  Serious: No
  Sender: FDA-Public Use
  Company Number: US-ASTRAZENECA-2012SE54606

PATIENT
  Age: 74 Year
  Sex: Male

DRUGS (5)
  1. CRESTOR [Suspect]
     Indication: BLOOD CHOLESTEROL INCREASED
     Route: 048
  2. CRESTOR [Suspect]
     Indication: BLOOD CHOLESTEROL INCREASED
     Route: 048
  3. CRESTOR [Suspect]
     Indication: BLOOD CHOLESTEROL INCREASED
     Route: 048
     Dates: start: 2008
  4. NIACIN [Suspect]
     Route: 065
  5. WARFARIN [Concomitant]

REACTIONS (5)
  - Pain [Unknown]
  - Blood creatine phosphokinase increased [Not Recovered/Not Resolved]
  - Lipids increased [Unknown]
  - Intentional drug misuse [Unknown]
  - Drug dose omission [Unknown]
